FAERS Safety Report 26191647 (Version 1)
Quarter: 2025Q4

REPORT INFORMATION
  Report Type: Spontaneous
  Country: US (occurrence: US)
  Receive Date: 20251223
  Receipt Date: 20251223
  Transmission Date: 20260117
  Serious: No
  Sender: ROCHE
  Company Number: US-ROCHE-10000459626

PATIENT
  Sex: Female

DRUGS (2)
  1. ACTEMRA ACTPEN [Suspect]
     Active Substance: TOCILIZUMAB
     Indication: Rheumatoid arthritis
     Dosage: 0.9 M
     Route: 058
     Dates: start: 202510
  2. RINVOQ [Concomitant]
     Active Substance: UPADACITINIB

REACTIONS (2)
  - Arthropathy [Unknown]
  - Arthralgia [Unknown]
